FAERS Safety Report 24823268 (Version 1)
Quarter: 2025Q1

REPORT INFORMATION
  Report Type: Spontaneous
  Country: US (occurrence: US)
  Receive Date: 20250109
  Receipt Date: 20250109
  Transmission Date: 20250409
  Serious: Yes (Hospitalization)
  Sender: MICRO LABS
  Company Number: US-MLMSERVICE-20241226-PI324352-00215-1

PATIENT
  Age: 68 Year
  Sex: Male

DRUGS (2)
  1. LOSARTAN [Suspect]
     Active Substance: LOSARTAN
     Indication: Product used for unknown indication
  2. MESALAMINE [Suspect]
     Active Substance: MESALAMINE
     Indication: Product used for unknown indication

REACTIONS (1)
  - Pancreatitis necrotising [Recovered/Resolved]
